FAERS Safety Report 22306400 (Version 1)
Quarter: 2023Q2

REPORT INFORMATION
  Report Type: Spontaneous
  Country: US (occurrence: US)
  Receive Date: 20230511
  Receipt Date: 20230511
  Transmission Date: 20230722
  Serious: No
  Sender: FDA-Public Use
  Company Number: US-BIOGEN-2023BI01203404

PATIENT
  Sex: Female

DRUGS (1)
  1. TYSABRI [Suspect]
     Active Substance: NATALIZUMAB
     Indication: Multiple sclerosis
     Route: 050
     Dates: start: 20220712

REACTIONS (6)
  - Product dose omission issue [Not Recovered/Not Resolved]
  - Hypoaesthesia [Unknown]
  - Lethargy [Unknown]
  - Tremor [Unknown]
  - Night sweats [Unknown]
  - Fatigue [Unknown]
